FAERS Safety Report 25526727 (Version 2)
Quarter: 2025Q3

REPORT INFORMATION
  Report Type: Spontaneous
  Country: EU (occurrence: EU)
  Receive Date: 20250707
  Receipt Date: 20250909
  Transmission Date: 20251021
  Serious: Yes (Life-Threatening, Hospitalization, Other)
  Sender: NOVARTIS
  Company Number: EU-002147023-NVSC2025FR107144

PATIENT
  Age: 23 Month
  Sex: Male

DRUGS (14)
  1. CYCLOSPORINE [Suspect]
     Active Substance: CYCLOSPORINE
     Indication: Kawasaki^s disease
     Dosage: 5 MG/KG, QD
     Route: 048
  2. CYCLOSPORINE [Suspect]
     Active Substance: CYCLOSPORINE
     Indication: Inflammation
     Route: 042
  3. CANAKINUMAB [Suspect]
     Active Substance: CANAKINUMAB
     Indication: Kawasaki^s disease
     Dosage: 4 MG/KG, Q4W
     Route: 065
  4. CANAKINUMAB [Suspect]
     Active Substance: CANAKINUMAB
     Indication: Inflammation
     Route: 065
  5. RUXOLITINIB [Suspect]
     Active Substance: RUXOLITINIB
     Indication: Kawasaki^s disease
     Dosage: 40 MG/M2, QD
     Route: 065
  6. RUXOLITINIB [Suspect]
     Active Substance: RUXOLITINIB
     Indication: Inflammation
  7. INFLIXIMAB [Suspect]
     Active Substance: INFLIXIMAB
     Indication: Kawasaki^s disease
     Route: 065
  8. INFLIXIMAB [Suspect]
     Active Substance: INFLIXIMAB
     Indication: Inflammation
  9. HUMAN IMMUNOGLOBULIN G [Suspect]
     Active Substance: HUMAN IMMUNOGLOBULIN G
     Indication: Kawasaki^s disease
     Route: 042
  10. HUMAN IMMUNOGLOBULIN G [Suspect]
     Active Substance: HUMAN IMMUNOGLOBULIN G
     Indication: Inflammation
  11. ANAKINRA [Suspect]
     Active Substance: ANAKINRA
     Indication: Kawasaki^s disease
     Dosage: 4.5 MG/KG, QD
     Route: 065
  12. ANAKINRA [Suspect]
     Active Substance: ANAKINRA
     Indication: Inflammation
  13. EMAPALUMAB [Suspect]
     Active Substance: EMAPALUMAB
     Indication: Haemophagocytic lymphohistiocytosis
     Route: 065
  14. EMAPALUMAB [Suspect]
     Active Substance: EMAPALUMAB
     Indication: Inflammation

REACTIONS (5)
  - Acute respiratory distress syndrome [Recovering/Resolving]
  - Drug reaction with eosinophilia and systemic symptoms [Recovering/Resolving]
  - Haemophagocytic lymphohistiocytosis [Unknown]
  - Off label use [Unknown]
  - Drug ineffective [Unknown]
